FAERS Safety Report 4386277-X (Version None)
Quarter: 2004Q2

REPORT INFORMATION
  Report Type: 
  Country: None (occurrence: None)
  Receive Date: 20040623
  Receipt Date: 20040610
  Transmission Date: 20050107
  Serious: Yes (Death, Hospitalization)
  Sender: FDA-Public Use
  Company Number: 200408990

PATIENT
  Age: 94 Year
  Sex: Male

DRUGS (8)
  1. STREPTOKINASE (STREPTOKINASE ) [Suspect]
     Indication: MYOCARDIAL INFARCTION
     Dosage: 1.5 MIU DAILY IV
     Route: 042
     Dates: start: 20040122, end: 20040122
  2. ASPIRIN [Suspect]
     Indication: MYOCARDIAL INFARCTION
     Dosage: 325 MG DAILY PO
     Route: 048
     Dates: start: 20040122, end: 20040122
  3. ENOXAPARIN SODIUM [Suspect]
     Indication: MYOCARDIAL INFARCTION
     Dosage: IV
     Route: 042
     Dates: start: 20040122, end: 20040125
  4. ENOXAPARIN SODIUM [Suspect]
     Dates: start: 20040101
  5. TRITACE [Concomitant]
  6. NEOBLOC [Concomitant]
  7. PENEDIL [Concomitant]
  8. FUSID [Concomitant]

REACTIONS (9)
  - CONFUSIONAL STATE [None]
  - HAEMARTHROSIS [None]
  - HAEMATOMA [None]
  - HAEMOGLOBIN DECREASED [None]
  - JOINT SWELLING [None]
  - MEDICATION ERROR [None]
  - MUSCLE HAEMORRHAGE [None]
  - OEDEMA PERIPHERAL [None]
  - SEPSIS [None]
